FAERS Safety Report 4589836-4 (Version None)
Quarter: 2005Q1

REPORT INFORMATION
  Report Type: 
  Country: None (occurrence: None)
  Receive Date: 20050223
  Receipt Date: 20050214
  Transmission Date: 20050727
  Serious: Yes (Hospitalization)
  Sender: FDA-Public Use
  Company Number: FR-ABBOTT-05P-056-0290843-00

PATIENT
  Age: 37 Year
  Sex: Female

DRUGS (7)
  1. AKINETON [Suspect]
     Indication: DRUG USE FOR UNKNOWN INDICATION
     Route: 048
     Dates: end: 20041215
  2. RISPERIDONE [Suspect]
     Indication: DRUG USE FOR UNKNOWN INDICATION
     Route: 048
     Dates: start: 20040901, end: 20041208
  3. METFORMIN HCL [Suspect]
     Indication: DRUG USE FOR UNKNOWN INDICATION
     Route: 048
     Dates: start: 20010101, end: 20041215
  4. HYDROXYZINE HYDROCHLORIDE [Suspect]
     Indication: DRUG USE FOR UNKNOWN INDICATION
     Route: 048
     Dates: start: 20040101, end: 20041215
  5. HALOPERIDOL [Suspect]
     Indication: DRUG USE FOR UNKNOWN INDICATION
     Route: 048
     Dates: start: 20040901, end: 20041208
  6. HALOPERIDOL [Suspect]
     Dosage: 15 TO 20 DROPS
     Route: 048
     Dates: start: 20041225
  7. LEVOTHYROXINE [Concomitant]
     Indication: DRUG USE FOR UNKNOWN INDICATION
     Route: 048
     Dates: start: 20040101

REACTIONS (8)
  - APLASIA [None]
  - BIOPSY BONE MARROW ABNORMAL [None]
  - BONE MARROW MYELOGRAM ABNORMAL [None]
  - DYSPNOEA EXERTIONAL [None]
  - EPISTAXIS [None]
  - GINGIVAL BLEEDING [None]
  - METRORRHAGIA [None]
  - PETECHIAE [None]
